FAERS Safety Report 24213383 (Version 1)
Quarter: 2024Q3

REPORT INFORMATION
  Report Type: Spontaneous
  Country: US (occurrence: None)
  Receive Date: 20240814
  Receipt Date: 20240814
  Transmission Date: 20241017
  Serious: Yes (Disabling)
  Sender: Public
  Company Number: None

PATIENT
  Age: 34 Year
  Sex: Female
  Weight: 123.75 kg

DRUGS (28)
  1. INVEGA [Suspect]
     Active Substance: PALIPERIDONE
  2. ACETAMINOPHEN [Concomitant]
     Active Substance: ACETAMINOPHEN
  3. ALBUTEROL [Concomitant]
     Active Substance: ALBUTEROL
  4. albuterol/ipratropium neb [Concomitant]
  5. AMLODIPINE [Concomitant]
     Active Substance: AMLODIPINE BESYLATE
  6. ASPIRIN [Concomitant]
     Active Substance: ASPIRIN
  7. DOCUSATE [Concomitant]
     Active Substance: DOCUSATE
  8. FLUTICASONE [Concomitant]
     Active Substance: FLUTICASONE
  9. GEMTESA [Concomitant]
     Active Substance: VIBEGRON
  10. GLIPIZIDE [Concomitant]
     Active Substance: GLIPIZIDE
  11. IBUPROFEN [Concomitant]
     Active Substance: IBUPROFEN
  12. LEVOTHYROXINE [Concomitant]
     Active Substance: LEVOTHYROXINE\LEVOTHYROXINE SODIUM
  13. LORATADINE [Concomitant]
     Active Substance: LORATADINE
  14. METFORMIN [Concomitant]
     Active Substance: METFORMIN HYDROCHLORIDE
  15. METOPROLOL [Concomitant]
     Active Substance: METOPROLOL
  16. MONTELUKAST [Concomitant]
     Active Substance: MONTELUKAST SODIUM
  17. OMEPRAZOLE [Concomitant]
     Active Substance: OMEPRAZOLE
  18. ondansatron [Concomitant]
  19. PRAVASTATIN [Concomitant]
     Active Substance: PRAVASTATIN
  20. SEMAGLUTIDE [Concomitant]
     Active Substance: SEMAGLUTIDE
  21. TIZANIDINE [Concomitant]
     Active Substance: TIZANIDINE
  22. VITAMIN D [Concomitant]
     Active Substance: VITAMIN D NOS
  23. BUSPIRONE [Concomitant]
     Active Substance: BUSPIRONE HYDROCHLORIDE
  24. LITHIUM [Concomitant]
     Active Substance: LITHIUM
  25. LORAZEPAM [Concomitant]
     Active Substance: LORAZEPAM
  26. PRAZOSIN [Concomitant]
     Active Substance: PRAZOSIN
  27. QUETIAPINE [Concomitant]
     Active Substance: QUETIAPINE
  28. VRAYLAR [Concomitant]
     Active Substance: CARIPRAZINE

REACTIONS (10)
  - Diabetes mellitus [None]
  - Weight increased [None]
  - Insurance issue [None]
  - Product use issue [None]
  - Hallucination [None]
  - Confusional state [None]
  - Dysarthria [None]
  - Dysphemia [None]
  - Aphasia [None]
  - Loss of personal independence in daily activities [None]

NARRATIVE: CASE EVENT DATE: 20240326
